FAERS Safety Report 21729561 (Version 1)
Quarter: 2022Q4

REPORT INFORMATION
  Report Type: Spontaneous
  Country: US (occurrence: US)
  Receive Date: 20221214
  Receipt Date: 20221214
  Transmission Date: 20230112
  Serious: Yes (Other)
  Sender: FDA-Public Use
  Company Number: US-PFIZER INC-202201362935

PATIENT
  Age: 48 Year
  Sex: Female

DRUGS (1)
  1. XELJANZ XR [Suspect]
     Active Substance: TOFACITINIB CITRATE
     Dosage: 11 MG, 1X/DAY
     Dates: start: 201803

REACTIONS (6)
  - Illness [Unknown]
  - Viral infection [Unknown]
  - Sinus congestion [Recovering/Resolving]
  - Oropharyngeal pain [Recovering/Resolving]
  - Headache [Recovering/Resolving]
  - Cough [Recovering/Resolving]

NARRATIVE: CASE EVENT DATE: 20221124
